FAERS Safety Report 4640038-2 (Version None)
Quarter: 2005Q2

REPORT INFORMATION
  Report Type: 
  Country: None (occurrence: None)
  Receive Date: 20050418
  Receipt Date: 20050404
  Transmission Date: 20051028
  Serious: Yes (Hospitalization, Other)
  Sender: FDA-Public Use
  Company Number: 2005055450

PATIENT
  Age: 30 Year
  Sex: Female

DRUGS (3)
  1. ZOLOFT [Suspect]
     Indication: POSTPARTUM DEPRESSION
     Dosage: 50 MG (1D), ORAL
     Route: 048
  2. VICODIN [Suspect]
     Indication: ILL-DEFINED DISORDER
  3. PROPACET 100 [Suspect]
     Indication: ILL-DEFINED DISORDER

REACTIONS (8)
  - BLOOD CHLORIDE INCREASED [None]
  - BLOOD GLUCOSE INCREASED [None]
  - BLOOD POTASSIUM DECREASED [None]
  - BLOOD SODIUM DECREASED [None]
  - CARBON DIOXIDE INCREASED [None]
  - FLANK PAIN [None]
  - MULTIPLE DRUG OVERDOSE [None]
  - SUICIDE ATTEMPT [None]
